FAERS Safety Report 8142850-4 (Version None)
Quarter: 2012Q1

REPORT INFORMATION
  Report Type: 
  Country: None (occurrence: None)
  Receive Date: 20120216
  Receipt Date: 20110531
  Transmission Date: 20120608
  Serious: Yes (Hospitalization)
  Sender: FDA-Public Use
  Company Number: PHHY2011AU115600

PATIENT
  Sex: Female

DRUGS (3)
  1. ZOLEDRONOC ACID [Suspect]
     Dosage: 5 MG, INFUSION NO. 1
     Route: 042
     Dates: start: 20090428
  2. ZOLEDRONOC ACID [Suspect]
     Dosage: 5 MG, INFUSION NO. 2
     Route: 042
     Dates: start: 20100309
  3. ZOLEDRONOC ACID [Suspect]
     Dosage: 5 MG, INFUSION NO. 3
     Route: 042
     Dates: start: 20110808

REACTIONS (2)
  - SKIN LESION [None]
  - CELLULITIS [None]
